FAERS Safety Report 21680582 (Version 3)
Quarter: 2024Q1

REPORT INFORMATION
  Report Type: Report from Study
  Country: US (occurrence: US)
  Receive Date: 20221205
  Receipt Date: 20240129
  Transmission Date: 20240409
  Serious: No
  Sender: FDA-Public Use
  Company Number: US-002147023-NVSC2022US280893

PATIENT
  Sex: Male

DRUGS (1)
  1. ENTRESTO [Suspect]
     Active Substance: SACUBITRIL\VALSARTAN
     Indication: Product used for unknown indication
     Dosage: 24/26 MG
     Route: 048
     Dates: start: 202210

REACTIONS (4)
  - Dyspnoea [Recovered/Resolved]
  - Inappropriate schedule of product administration [Recovering/Resolving]
  - Incorrect dose administered [Recovering/Resolving]
  - Chest pain [Recovered/Resolved]
